FAERS Safety Report 9482728 (Version 1)
Quarter: 2013Q3

REPORT INFORMATION
  Report Type: Report from Study
  Country: DE (occurrence: DE)
  Receive Date: 20130828
  Receipt Date: 20130828
  Transmission Date: 20140515
  Serious: Yes (Other)
  Sender: FDA-Public Use
  Company Number: DE-INCYTE CORPORATION-2013IN001932

PATIENT
  Sex: Male
  Weight: 70 kg

DRUGS (3)
  1. INCB018424 [Suspect]
     Indication: MYELOFIBROSIS
     Dosage: 15 MG, 2DF PER DAY
     Route: 048
     Dates: start: 20121015, end: 20121112
  2. INCB018424 [Suspect]
     Dosage: 5 MG, 2 DF PER DAY
     Route: 048
     Dates: start: 20121112
  3. BLOOD TRANSFUSION, AUXILIARY PRODUCTS [Concomitant]
     Dosage: UNK
     Dates: start: 20120417

REACTIONS (1)
  - Serum ferritin increased [Not Recovered/Not Resolved]
